FAERS Safety Report 24561849 (Version 1)
Quarter: 2024Q4

REPORT INFORMATION
  Report Type: Spontaneous
  Country: US (occurrence: None)
  Receive Date: 20241029
  Receipt Date: 20241029
  Transmission Date: 20250115
  Serious: Yes (Hospitalization)
  Sender: USAntibiotics
  Company Number: US-USAntibiotics-000349

PATIENT
  Age: 64 Year
  Sex: Female
  Weight: 68.93 kg

DRUGS (12)
  1. AUGMENTIN [Suspect]
     Active Substance: AMOXICILLIN\CLAVULANATE POTASSIUM
     Indication: Product used for unknown indication
  2. OGSIVEO [Suspect]
     Active Substance: NIROGACESTAT HYDROBROMIDE
     Indication: Breast cancer
     Dates: start: 20240919
  3. BETAHISTINE [Concomitant]
     Active Substance: BETAHISTINE
     Indication: Product used for unknown indication
  4. BUSPIRONE [Concomitant]
     Active Substance: BUSPIRONE HYDROCHLORIDE
     Indication: Product used for unknown indication
  5. NP THYROID [Concomitant]
     Active Substance: LEVOTHYROXINE\LIOTHYRONINE
     Indication: Product used for unknown indication
  6. ZYRTEC [Concomitant]
     Active Substance: CETIRIZINE HYDROCHLORIDE
     Indication: Product used for unknown indication
  7. REPATHA [Concomitant]
     Active Substance: EVOLOCUMAB
     Indication: Product used for unknown indication
  8. IBUPROFEN [Concomitant]
     Active Substance: IBUPROFEN
     Indication: Product used for unknown indication
  9. TYLENOL [Concomitant]
     Active Substance: ACETAMINOPHEN
     Indication: Product used for unknown indication
  10. OGSIVEO [Suspect]
     Active Substance: NIROGACESTAT HYDROBROMIDE
     Indication: Breast cancer
     Dosage: 150 MG (BID) TWICE A DAY
     Route: 048
     Dates: end: 20240911
  11. OGSIVEO [Suspect]
     Active Substance: NIROGACESTAT HYDROBROMIDE
     Indication: Breast cancer
     Dosage: 150 MG ORAL (PO) ONCE DAILY (QD)
     Route: 048
     Dates: start: 20240815
  12. OGSIVEO [Suspect]
     Active Substance: NIROGACESTAT HYDROBROMIDE
     Indication: Breast cancer
     Dosage: 150 MG ORAL (PO) ONCE DAILY (QD)
     Route: 048
     Dates: start: 20240729

REACTIONS (10)
  - Pyrexia [Unknown]
  - Post procedural drainage [Unknown]
  - Sepsis [Unknown]
  - Cellulitis [Unknown]
  - Staphylococcal infection [Unknown]
  - Abdominal distension [Unknown]
  - Surgery [Unknown]
  - Underdose [Unknown]
  - Off label use [Unknown]
  - Drug ineffective for unapproved indication [Unknown]

NARRATIVE: CASE EVENT DATE: 20240101
